FAERS Safety Report 13736319 (Version 3)
Quarter: 2017Q3

REPORT INFORMATION
  Report Type: Report from Study
  Country: US (occurrence: US)
  Receive Date: 20170710
  Receipt Date: 20170719
  Transmission Date: 20171127
  Serious: No
  Sender: FDA-Public Use
  Company Number: US-ASTRAZENECA-2017SE69102

PATIENT
  Age: 660 Month
  Sex: Female
  Weight: 49.9 kg

DRUGS (8)
  1. ASTHMA-NEX [Concomitant]
     Indication: ASTHMA
     Route: 055
     Dates: start: 2007
  2. ALBUTEROL SULFATE INHALER [Concomitant]
     Indication: INHALATION THERAPY
     Route: 055
     Dates: start: 1989
  3. PULMICORT RESPULES [Suspect]
     Active Substance: BUDESONIDE
     Indication: ASTHMA
     Route: 055
     Dates: start: 201505, end: 201704
  4. PULMICORT RESPULES [Suspect]
     Active Substance: BUDESONIDE
     Indication: ASTHMA
     Route: 055
     Dates: start: 201505, end: 201704
  5. SINGULAIR [Concomitant]
     Active Substance: MONTELUKAST SODIUM
     Indication: ASTHMA
     Route: 048
     Dates: start: 1997
  6. RHINOCORT [Suspect]
     Active Substance: BUDESONIDE
     Indication: NASAL POLYPS
     Dosage: GENERIC BUDESONIDE, 32 MCG, 2 SPRAYS TO EACH NOSTRIL
     Route: 045
     Dates: start: 201704
  7. PULMICORT RESPULES [Suspect]
     Active Substance: BUDESONIDE
     Indication: NASAL POLYPS
     Route: 055
     Dates: start: 201505, end: 201704
  8. PULMICORT RESPULES [Suspect]
     Active Substance: BUDESONIDE
     Indication: NASAL POLYPS
     Route: 055
     Dates: start: 201505, end: 201704

REACTIONS (7)
  - Asthma [Unknown]
  - Product use in unapproved indication [Unknown]
  - Sinusitis [Unknown]
  - Insurance issue [Unknown]
  - Off label use [Unknown]
  - Tracheitis [Unknown]
  - Expired product administered [Unknown]

NARRATIVE: CASE EVENT DATE: 201505
